FAERS Safety Report 14300541 (Version 1)
Quarter: 2017Q4

REPORT INFORMATION
  Report Type: Spontaneous
  Country: DE (occurrence: DE)
  Receive Date: 20171219
  Receipt Date: 20171219
  Transmission Date: 20180321
  Serious: Yes (Other)
  Sender: FDA-Public Use
  Company Number: DE-DRREDDYS-GER/GER/17/0095140

PATIENT
  Age: 51 Year
  Sex: Female

DRUGS (1)
  1. MEMANTIN HYDROCHLORID 10MG [Suspect]
     Active Substance: MEMANTINE HYDROCHLORIDE
     Indication: DEMENTIA
     Route: 048
     Dates: start: 20170906

REACTIONS (1)
  - Visual impairment [Not Recovered/Not Resolved]
